FAERS Safety Report 7041450-7 (Version None)
Quarter: 2010Q4

REPORT INFORMATION
  Report Type: 
  Country: None (occurrence: None)
  Receive Date: 20101013
  Receipt Date: 20101008
  Transmission Date: 20110411
  Serious: Yes (Hospitalization)
  Sender: FDA-Public Use
  Company Number: FR-WYE-G06787310

PATIENT
  Sex: Male

DRUGS (11)
  1. EFFEXOR [Suspect]
     Dosage: UNKNOWN
     Route: 048
  2. RIVOTRIL [Suspect]
     Dosage: UNKNOWN
     Route: 048
  3. MODOPAR [Suspect]
     Dosage: UNKNOWN
     Route: 048
  4. ETHANOL [Suspect]
     Dosage: UNKNOWN
     Route: 048
     Dates: start: 20100924, end: 20100924
  5. SOTALEX [Concomitant]
     Indication: HYPERTENSION
     Dosage: UNKNOWN
  6. FOLIC ACID [Concomitant]
     Dosage: UNKNOWN
  7. CACIT VITAMINE D3 [Concomitant]
     Dosage: UNKNOWN
     Route: 048
  8. DOLIPRANE [Concomitant]
     Dosage: UNKNOWN
  9. KARDEGIC [Concomitant]
     Indication: HYPERTENSION
     Dosage: UNKNOWN
  10. STILNOX [Suspect]
     Dosage: UNKNOWN
     Route: 048
  11. LEVOTHYROXINE SODIUM [Concomitant]
     Dosage: UNKNOWN
     Route: 048

REACTIONS (5)
  - AMNESIA [None]
  - BURNS SECOND DEGREE [None]
  - CONFUSIONAL STATE [None]
  - MALAISE [None]
  - SOMNAMBULISM [None]
